FAERS Safety Report 10989444 (Version 1)
Quarter: 2015Q2

REPORT INFORMATION
  Report Type: Spontaneous
  Country: PL (occurrence: PL)
  Receive Date: 20150406
  Receipt Date: 20150406
  Transmission Date: 20150821
  Serious: Yes (Other)
  Sender: FDA-Public Use
  Company Number: PL-PAR PHARMACEUTICAL, INC-2015SCPR010453

PATIENT

DRUGS (5)
  1. VENLAFAXINE HYDROCHLORIDE. [Interacting]
     Active Substance: VENLAFAXINE HYDROCHLORIDE
     Indication: AFFECTIVE DISORDER
     Dosage: 75 MG, / DAY
     Route: 065
  2. SARCOSINE [Interacting]
     Active Substance: SARCOSINE
     Indication: SCHIZOPHRENIA
     Dosage: 2 G, / DAY
     Route: 065
  3. OLANZAPINE. [Suspect]
     Active Substance: OLANZAPINE
     Indication: AFFECTIVE DISORDER
     Dosage: 25 MG, / DAY
     Route: 065
  4. VENLAFAXINE HYDROCHLORIDE. [Interacting]
     Active Substance: VENLAFAXINE HYDROCHLORIDE
     Indication: DEPRESSIVE SYMPTOM
     Dosage: 37.5 MG, / DAY
     Route: 065
  5. OLANZAPINE. [Interacting]
     Active Substance: OLANZAPINE
     Indication: DEPRESSIVE SYMPTOM

REACTIONS (2)
  - Drug interaction [Unknown]
  - Hypomania [Recovering/Resolving]
